FAERS Safety Report 5913092-5 (Version None)
Quarter: 2008Q4

REPORT INFORMATION
  Report Type: 
  Country: None (occurrence: None)
  Receive Date: 20081008
  Receipt Date: 20081008
  Transmission Date: 20090506
  Serious: No
  Sender: FDA-Public Use
  Company Number: None

PATIENT
  Age: 72 Year
  Sex: Female
  Weight: 74.3899 kg

DRUGS (1)
  1. FOSAMAX [Suspect]
     Indication: OSTEOPOROSIS
     Dosage: 70 MG 1 TAB WEEKLY PO
     Route: 048
     Dates: start: 20080501, end: 20080901

REACTIONS (2)
  - DRUG INEFFECTIVE [None]
  - GASTRIC DISORDER [None]
